FAERS Safety Report 5066484-3 (Version None)
Quarter: 2006Q3

REPORT INFORMATION
  Report Type: 
  Country: None (occurrence: None)
  Receive Date: 20060731
  Receipt Date: 20060731
  Transmission Date: 20061208
  Serious: Yes (Life-Threatening, Hospitalization)
  Sender: FDA-Public Use
  Company Number: None

PATIENT
  Age: 46 Year
  Sex: Female

DRUGS (8)
  1. LITHIUM [Suspect]
     Indication: BIPOLAR DISORDER
     Dosage: 600 MG  BID  PO   (THERAPY DATES: RESTARTED 7 DAYS PTA)
     Route: 048
  2. HYDROXYZINE [Concomitant]
  3. TRIFLUOPERAZINE HCL [Concomitant]
  4. LUNESTA [Concomitant]
  5. KLONOPIN [Concomitant]
  6. COMBIVENT [Concomitant]
  7. AVELOX [Concomitant]
  8. PREDNISONE [Concomitant]

REACTIONS (9)
  - ANTIPSYCHOTIC DRUG LEVEL ABOVE THERAPEUTIC [None]
  - CHEST DISCOMFORT [None]
  - DEHYDRATION [None]
  - DIARRHOEA [None]
  - FLUID INTAKE REDUCED [None]
  - ILEUS [None]
  - NAUSEA [None]
  - RENAL FAILURE ACUTE [None]
  - VOMITING [None]
